FAERS Safety Report 8338346-7 (Version None)
Quarter: 2012Q1

REPORT INFORMATION
  Report Type: 
  Country: None (occurrence: None)
  Receive Date: 20120329
  Receipt Date: 20081124
  Transmission Date: 20120608
  Serious: Yes (Other)
  Sender: FDA-Public Use
  Company Number: PHEH2008US10598

PATIENT
  Sex: Female

DRUGS (2)
  1. CLARITIN [Concomitant]
  2. LAMISIL [Suspect]
     Indication: NAIL DISCOLOURATION
     Dosage: 250 MG, QD, ORAL
     Route: 048
     Dates: start: 20080814, end: 20081118

REACTIONS (4)
  - WEIGHT DECREASED [None]
  - DECREASED APPETITE [None]
  - DYSGEUSIA [None]
  - AGEUSIA [None]
